FAERS Safety Report 8598139-2 (Version None)
Quarter: 2012Q3

REPORT INFORMATION
  Report Type: 
  Country: None (occurrence: None)
  Receive Date: 20120816
  Receipt Date: 20120807
  Transmission Date: 20120928
  Serious: Yes (Hospitalization, Other)
  Sender: FDA-Public Use
  Company Number: GB-ASTRAZENECA-2012SE55694

PATIENT
  Age: 40 Year
  Sex: Male

DRUGS (11)
  1. QUETIAPINE [Suspect]
     Route: 048
  2. ABILIFY [Suspect]
     Route: 048
  3. ABILIFY [Suspect]
     Indication: SCHIZOAFFECTIVE DISORDER
     Route: 048
     Dates: start: 20081001
  4. UNSPECIFIED DRUGS USED IN DIABETES [Concomitant]
  5. DULOXETINE HYDROCHLORIDE [Suspect]
  6. VALPROATE SODIUM [Suspect]
  7. EFFEXOR [Concomitant]
     Indication: DEPRESSION
     Route: 048
  8. MIRTAZAPINE [Suspect]
  9. ABILIFY [Suspect]
     Dosage: REDUCED DOSE
     Route: 048
  10. LITHIUM CARBONATE [Concomitant]
  11. RISPERIDONE [Suspect]

REACTIONS (5)
  - MAJOR DEPRESSION [None]
  - METABOLIC SYNDROME [None]
  - HYPOTHYROIDISM [None]
  - PSYCHOTIC DISORDER [None]
  - LIVER FUNCTION TEST ABNORMAL [None]
